FAERS Safety Report 24723043 (Version 5)
Quarter: 2025Q3

REPORT INFORMATION
  Report Type: Spontaneous
  Country: JP (occurrence: JP)
  Receive Date: 20241211
  Receipt Date: 20250710
  Transmission Date: 20251021
  Serious: Yes (Hospitalization, Other)
  Sender: RIGEL PHARMACEUTICALS
  Company Number: JP-KISSEI-TL20240727_P_1

PATIENT
  Age: 80 Year
  Sex: Male
  Weight: 61 kg

DRUGS (38)
  1. TAVALISSE [Suspect]
     Active Substance: FOSTAMATINIB
     Indication: Immune thrombocytopenia
     Dosage: 100, MG BID
     Route: 048
     Dates: start: 20241021, end: 20241108
  2. TAVALISSE [Suspect]
     Active Substance: FOSTAMATINIB
     Dosage: 100 MG, BID
     Route: 048
     Dates: start: 20241118, end: 20241205
  3. TAVALISSE [Suspect]
     Active Substance: FOSTAMATINIB
     Dosage: REDUCED TO 100 MG, QD
     Route: 048
     Dates: start: 20241206
  4. TAVALISSE [Suspect]
     Active Substance: FOSTAMATINIB
     Dosage: 100 MG, BID
     Route: 048
     Dates: start: 20241220, end: 20250307
  5. TAVALISSE [Suspect]
     Active Substance: FOSTAMATINIB
     Dosage: 100 MG, QD
     Route: 048
     Dates: start: 20250307
  6. ADRENAL GLAND [Concomitant]
     Indication: Immune thrombocytopenia
     Route: 065
  7. PREDONINE [Suspect]
     Active Substance: PREDNISOLONE
     Indication: Immune thrombocytopenia
     Dosage: 5 MG, QD
     Route: 048
  8. PREDONINE [Suspect]
     Active Substance: PREDNISOLONE
     Dosage: 30 MG, QD
     Route: 041
     Dates: start: 20241118, end: 20241123
  9. ROMIPLOSTIM [Suspect]
     Active Substance: ROMIPLOSTIM
     Indication: Immune thrombocytopenia
     Dosage: 250 MCG, QW
     Route: 058
     Dates: start: 20241025, end: 20241025
  10. ROMIPLOSTIM [Suspect]
     Active Substance: ROMIPLOSTIM
     Dosage: 250 MCG, QW
     Route: 058
     Dates: start: 20241118, end: 20241125
  11. ROMIPLOSTIM [Suspect]
     Active Substance: ROMIPLOSTIM
     Dosage: 250 MCG, QW
     Route: 058
     Dates: start: 20250106, end: 20250113
  12. ROMIPLOSTIM [Suspect]
     Active Substance: ROMIPLOSTIM
     Dosage: 250 MICROGRAM, QW
     Route: 058
     Dates: start: 20250207, end: 20250221
  13. RITUXIMAB [Suspect]
     Active Substance: RITUXIMAB
     Indication: Immune thrombocytopenia
     Dosage: 500 MILLIGRAM, QW
     Route: 041
     Dates: start: 20250210, end: 20250307
  14. CALONAL [Concomitant]
     Active Substance: ACETAMINOPHEN
     Indication: Neuralgia
     Route: 042
  15. CALONAL [Concomitant]
     Active Substance: ACETAMINOPHEN
     Dosage: 1000 MG, Q8H
     Route: 048
  16. ACETAMINOPHEN [Concomitant]
     Active Substance: ACETAMINOPHEN
     Indication: Pyrexia
     Dosage: 500 MG, QD
     Route: 041
  17. PIPERACILLIN SODIUM\TAZOBACTAM SODIUM [Concomitant]
     Active Substance: PIPERACILLIN SODIUM\TAZOBACTAM SODIUM
     Indication: Sepsis
     Dosage: 4.5 G, Q6H
     Route: 041
     Dates: start: 20241012, end: 20241024
  18. HUMULIN R [Concomitant]
     Active Substance: INSULIN HUMAN
     Indication: Steroid diabetes
     Route: 058
  19. HUMULIN R [Concomitant]
     Active Substance: INSULIN HUMAN
     Route: 058
     Dates: start: 20250109, end: 20250109
  20. HUMULIN R [Concomitant]
     Active Substance: INSULIN HUMAN
     Route: 058
     Dates: start: 20250213, end: 20250213
  21. CALCIUM CHLORIDE\POTASSIUM CHLORIDE\SODIUM CHLORIDE\SODIUM LACTATE [Concomitant]
     Active Substance: CALCIUM CHLORIDE\POTASSIUM CHLORIDE\SODIUM CHLORIDE\SODIUM LACTATE
     Indication: Circulatory collapse
     Route: 041
     Dates: start: 20241118
  22. CALCIUM CHLORIDE\POTASSIUM CHLORIDE\SODIUM CHLORIDE\SODIUM LACTATE [Concomitant]
     Active Substance: CALCIUM CHLORIDE\POTASSIUM CHLORIDE\SODIUM CHLORIDE\SODIUM LACTATE
     Route: 041
     Dates: start: 20250106, end: 20250106
  23. PRECEDEX [Concomitant]
     Active Substance: DEXMEDETOMIDINE HYDROCHLORIDE
     Indication: Restlessness
     Dosage: 200 MCG, QD
     Route: 041
     Dates: start: 20241118, end: 20241119
  24. VEEN D [Concomitant]
     Active Substance: CALCIUM CHLORIDE\DEXTROSE\POTASSIUM CHLORIDE\SODIUM ACETATE\SODIUM CHLORIDE
     Indication: Circulatory collapse
     Route: 041
     Dates: start: 20241118, end: 20241126
  25. VEEN D [Concomitant]
     Active Substance: CALCIUM CHLORIDE\DEXTROSE\POTASSIUM CHLORIDE\SODIUM ACETATE\SODIUM CHLORIDE
     Route: 041
     Dates: start: 20250111, end: 20250113
  26. VENILON [Concomitant]
     Active Substance: HUMAN IMMUNOGLOBULIN G
     Indication: Immune thrombocytopenia
     Dosage: 300 ML, QD
     Route: 041
     Dates: start: 20241121, end: 20241125
  27. VENILON [Concomitant]
     Active Substance: HUMAN IMMUNOGLOBULIN G
     Dosage: 300 ML, QD
     Route: 041
     Dates: start: 20250106, end: 20250110
  28. CARBAZOCHROME SODIUM SULFONATE [Concomitant]
     Active Substance: CARBAZOCHROME SODIUM SULFONATE
     Indication: Purpura
     Dosage: 100 MG, QD
     Route: 041
     Dates: start: 20250111, end: 20250113
  29. VONOPRAZAN FUMARATE [Concomitant]
     Active Substance: VONOPRAZAN FUMARATE
     Indication: Gastric ulcer
     Dosage: 20 MG, QD
     Route: 048
  30. ZOLPIDEM TARTRATE [Concomitant]
     Active Substance: ZOLPIDEM TARTRATE
     Indication: Insomnia
     Dosage: 5 MG, QD
     Route: 048
  31. MIYA-BM [Concomitant]
     Active Substance: CLOSTRIDIUM BUTYRICUM SPORES STRAIN M-55
     Indication: Enterocolitis
     Dosage: 40 MG, Q8H
     Route: 048
  32. MITIGLINIDE CALCIUM HYDRATE [Concomitant]
     Active Substance: MITIGLINIDE CALCIUM HYDRATE
     Indication: Steroid diabetes
     Dosage: 10 MG, Q8H
     Route: 048
  33. SULFAMETHOXAZOLE\TRIMETHOPRIM [Concomitant]
     Active Substance: SULFAMETHOXAZOLE\TRIMETHOPRIM
     Indication: Neuralgia
     Route: 048
  34. MIROGABALIN BESYLATE [Concomitant]
     Active Substance: MIROGABALIN BESYLATE
     Indication: Neuralgia
     Dosage: 10 MG, BID
     Route: 048
  35. AMITRIPTYLINE [Concomitant]
     Active Substance: AMITRIPTYLINE
     Indication: Neuralgia
     Dosage: 10 MG, QD
     Route: 048
  36. DAYVIGO [Concomitant]
     Active Substance: LEMBOREXANT
     Indication: Insomnia
     Dosage: 5 MG, QD
     Route: 048
  37. DULOXETINE [Concomitant]
     Active Substance: DULOXETINE
     Indication: Insomnia
     Dosage: 20 MG, QD
     Route: 048
  38. DIETARY SUPPLEMENT\PROBIOTICS [Concomitant]
     Active Substance: DIETARY SUPPLEMENT\PROBIOTICS NOS
     Indication: Enterocolitis
     Dosage: 1 DOSAGE FORM, Q8H
     Route: 048
     Dates: start: 20241227

REACTIONS (7)
  - Gastrointestinal haemorrhage [Recovered/Resolved]
  - Platelet count increased [Not Recovered/Not Resolved]
  - Pneumonia [Recovering/Resolving]
  - Blister [Recovered/Resolved]
  - Liver disorder [Recovered/Resolved]
  - Underdose [Unknown]
  - Hypertension [Not Recovered/Not Resolved]

NARRATIVE: CASE EVENT DATE: 20241027
